FAERS Safety Report 25066664 (Version 2)
Quarter: 2025Q1

REPORT INFORMATION
  Report Type: Spontaneous
  Country: US (occurrence: US)
  Receive Date: 20250312
  Receipt Date: 20250318
  Transmission Date: 20250409
  Serious: No
  Sender: AMGEN
  Company Number: US-AMGEN-USASP2025047811

PATIENT

DRUGS (2)
  1. KYPROLIS [Suspect]
     Active Substance: CARFILZOMIB
     Indication: Product used for unknown indication
     Route: 065
  2. DEXAMETHASONE [Concomitant]
     Active Substance: DEXAMETHASONE
     Route: 065

REACTIONS (4)
  - Nausea [Unknown]
  - Headache [Unknown]
  - Pyrexia [Unknown]
  - Chills [Unknown]
